FAERS Safety Report 10375293 (Version 1)
Quarter: 2014Q3

REPORT INFORMATION
  Report Type: Spontaneous
  Country: US (occurrence: None)
  Receive Date: 20140808
  Receipt Date: 20140808
  Transmission Date: 20150326
  Serious: Yes (Other)
  Sender: FDA-Public Use
  Company Number: None

PATIENT
  Age: 67 Year
  Sex: Female
  Weight: 82.1 kg

DRUGS (1)
  1. TRAMADOL HCL [Suspect]
     Active Substance: TRAMADOL HYDROCHLORIDE
     Indication: LIMB INJURY
     Dosage: TAKE 1-2 TABLETS EVERY 6 HRS., AS NEEDED, TAKEN BY MOUTH
     Route: 048

REACTIONS (7)
  - Nausea [None]
  - Vomiting [None]
  - Dyspnoea [None]
  - Dizziness [None]
  - Rash pruritic [None]
  - Headache [None]
  - Coordination abnormal [None]

NARRATIVE: CASE EVENT DATE: 20140806
